FAERS Safety Report 17580056 (Version 1)
Quarter: 2020Q1

REPORT INFORMATION
  Report Type: Spontaneous
  Country: US (occurrence: US)
  Receive Date: 20200324
  Receipt Date: 20200324
  Transmission Date: 20200409
  Serious: Yes (Life-Threatening, Disabling)
  Sender: FDA-Public Use
  Company Number: None

PATIENT
  Age: 68 Year
  Sex: Male
  Weight: 74.25 kg

DRUGS (5)
  1. HUMIRA [Suspect]
     Active Substance: ADALIMUMAB
     Indication: PSORIASIS
     Dosage: ?          OTHER FREQUENCY:INJECTION EVERY 2;?
     Route: 030
     Dates: start: 20101201, end: 20191201
  2. HUMIRA [Suspect]
     Active Substance: ADALIMUMAB
     Indication: PSORIATIC ARTHROPATHY
     Dosage: ?          OTHER FREQUENCY:INJECTION EVERY 2;?
     Route: 030
     Dates: start: 20101201, end: 20191201
  3. ACITRETIN. [Concomitant]
     Active Substance: ACITRETIN
  4. OTEZLA [Concomitant]
     Active Substance: APREMILAST
  5. OMEPRAZOLE. [Concomitant]
     Active Substance: OMEPRAZOLE

REACTIONS (1)
  - Non-Hodgkin^s lymphoma [None]

NARRATIVE: CASE EVENT DATE: 20191102
